FAERS Safety Report 9062176 (Version 1)
Quarter: 2013Q1

REPORT INFORMATION
  Report Type: Spontaneous
  Country: US (occurrence: US)
  Receive Date: 20130213
  Receipt Date: 20130213
  Transmission Date: 20140127
  Serious: No
  Sender: FDA-Public Use
  Company Number: US-BIOGENIDEC-2013BI010750

PATIENT
  Sex: Female

DRUGS (1)
  1. AVONEX [Suspect]
     Indication: MULTIPLE SCLEROSIS
     Route: 030
     Dates: start: 20070723, end: 20121205

REACTIONS (8)
  - Urinary incontinence [Unknown]
  - Sensory disturbance [Unknown]
  - Neurogenic bladder [Unknown]
  - Gait disturbance [Unknown]
  - Tremor [Unknown]
  - Headache [Unknown]
  - Pain [Unknown]
  - Paraesthesia [Unknown]
